FAERS Safety Report 9541638 (Version 1)
Quarter: 2013Q3

REPORT INFORMATION
  Report Type: Spontaneous
  Country: US (occurrence: US)
  Receive Date: 20130923
  Receipt Date: 20130923
  Transmission Date: 20140515
  Serious: No
  Sender: FDA-Public Use
  Company Number: US-JNJFOC-20130908891

PATIENT
  Sex: Female
  Weight: 106.6 kg

DRUGS (2)
  1. SANDOZ FENTANYL TRANSDERMAL SYSTEM [Suspect]
     Indication: PAIN
     Dosage: ONE 25 UG/HR AND ONE 12.5 UG/HR PATCHES
     Route: 062
     Dates: start: 2011
  2. UNSPECIFIED FENTANYL TRANSDERMAL SYSTEM [Suspect]
     Indication: PAIN
     Dosage: ONE 25 UG/HR AND ONE 12.5 UG/HR PATCHES
     Route: 062
     Dates: start: 2011

REACTIONS (3)
  - Wrong technique in drug usage process [Not Recovered/Not Resolved]
  - Product quality issue [Unknown]
  - Product quality issue [Unknown]
